FAERS Safety Report 11846710 (Version 1)
Quarter: 2015Q4

REPORT INFORMATION
  Report Type: Spontaneous
  Country: US (occurrence: US)
  Receive Date: 20151217
  Receipt Date: 20151217
  Transmission Date: 20160305
  Serious: No
  Sender: FDA-Public Use
  Company Number: US-ROCHE-1508820

PATIENT
  Age: 5 Year
  Sex: Female

DRUGS (1)
  1. TAMIFLU [Suspect]
     Active Substance: OSELTAMIVIR PHOSPHATE
     Indication: INFLUENZA
     Route: 065
     Dates: start: 20141209, end: 20141213

REACTIONS (6)
  - Crying [Not Recovered/Not Resolved]
  - Anxiety [Not Recovered/Not Resolved]
  - Therapy cessation [Unknown]
  - Hyperaesthesia [Not Recovered/Not Resolved]
  - Unevaluable event [Not Recovered/Not Resolved]
  - Depression [Not Recovered/Not Resolved]

NARRATIVE: CASE EVENT DATE: 20141213
